FAERS Safety Report 11420716 (Version 1)
Quarter: 2015Q3

REPORT INFORMATION
  Report Type: Report from Study
  Country: EE (occurrence: EE)
  Receive Date: 20150826
  Receipt Date: 20150826
  Transmission Date: 20151125
  Serious: Yes (Hospitalization, Other)
  Sender: FDA-Public Use
  Company Number: EE-GLAXOSMITHKLINE-EE2015GSK120929

PATIENT
  Age: 81 Year

DRUGS (22)
  1. OBINUTUZUMAB [Suspect]
     Active Substance: OBINUTUZUMAB
     Dosage: 1000 MG, CYC
     Route: 042
     Dates: start: 20141006, end: 20141006
  2. PARACETAMOL [Concomitant]
     Active Substance: ACETAMINOPHEN
     Dosage: 1 G, PRN
     Route: 048
     Dates: start: 20150601, end: 20150614
  3. METOZOK [Concomitant]
     Dosage: 47.5 MG, 1D
     Route: 048
     Dates: start: 20150615, end: 20150717
  4. BURONIL [Concomitant]
     Active Substance: MELPERONE HYDROCHLORIDE
     Dosage: 25 MG, PRN
     Route: 048
     Dates: start: 201507, end: 201507
  5. OBINUTUZUMAB [Suspect]
     Active Substance: OBINUTUZUMAB
     Dosage: 1000 MG, CYC
     Route: 042
     Dates: start: 20140616, end: 20140616
  6. FELODIPIN [Concomitant]
     Active Substance: FELODIPINE
     Indication: HYPERTENSION
     Dosage: 10 MG, 1D
     Route: 048
     Dates: start: 200009
  7. RETAFER [Concomitant]
     Dosage: 100 MG, 1D
     Route: 048
     Dates: start: 20150603, end: 20150615
  8. OBINUTUZUMAB [Suspect]
     Active Substance: OBINUTUZUMAB
     Dosage: 975 MG, UNK
     Route: 042
     Dates: start: 20140522, end: 20140522
  9. OBINUTUZUMAB [Suspect]
     Active Substance: OBINUTUZUMAB
     Dosage: 1000 MG, UNK
     Route: 042
     Dates: start: 20140602, end: 20140602
  10. BISACODYL. [Concomitant]
     Active Substance: BISACODYL
     Dosage: 10 MG, SINGLE
     Route: 054
     Dates: start: 20150607, end: 20150607
  11. CLEXANE [Concomitant]
     Active Substance: ENOXAPARIN SODIUM
     Indication: PROPHYLAXIS
     Dosage: 0.4 ML, SINGLE
     Route: 058
     Dates: start: 201507, end: 201507
  12. FELODIPIN [Concomitant]
     Active Substance: FELODIPINE
     Dosage: 10 MG, 1D
     Dates: start: 20150615, end: 20150717
  13. VANCOMYCIN [Concomitant]
     Active Substance: VANCOMYCIN
     Dosage: 1 G, TID
     Route: 042
     Dates: start: 20150604, end: 20150615
  14. GABAPENTIN. [Concomitant]
     Active Substance: GABAPENTIN
     Dosage: 300 MG, TID
     Route: 048
     Dates: start: 20150710, end: 20150713
  15. CEFUROXIME SODIUM. [Suspect]
     Active Substance: CEFUROXIME SODIUM
     Indication: URINARY TRACT INFECTION
     Dosage: UNK
     Dates: start: 20150625
  16. SIMVACOR [Concomitant]
     Active Substance: SIMVASTATIN
     Dosage: 10 MG, 1D
     Dates: start: 20150615
  17. PARACETAMOL [Concomitant]
     Active Substance: ACETAMINOPHEN
     Dosage: 1 G, UNK
     Route: 042
     Dates: start: 20140519, end: 20140520
  18. OBINUTUZUMAB [Suspect]
     Active Substance: OBINUTUZUMAB
     Indication: CHRONIC LYMPHOCYTIC LEUKAEMIA
     Dosage: 25 MG, UNK
     Route: 042
     Dates: start: 20140519, end: 20140519
  19. FORTUM [Concomitant]
     Active Substance: CEFTAZIDIME
     Indication: SEPSIS
     Dosage: 2 G, TID
     Route: 042
     Dates: start: 20150604, end: 20150615
  20. OBINUTUZUMAB [Suspect]
     Active Substance: OBINUTUZUMAB
     Dosage: 1000 MG, UNK
     Route: 042
     Dates: start: 20140526, end: 20140526
  21. SIMVACOR [Concomitant]
     Active Substance: SIMVASTATIN
     Indication: HYPERCHOLESTEROLAEMIA
     Dosage: 10 MG, 1D
     Route: 048
     Dates: start: 200009
  22. DEXAMETHAZON [Concomitant]
     Active Substance: DEXAMETHASONE
     Dosage: 8 MG, SINGLE
     Route: 042
     Dates: start: 20140519, end: 20140519

REACTIONS (2)
  - Urinary tract infection [Recovered/Resolved with Sequelae]
  - Enterocolitis infectious [Recovered/Resolved]

NARRATIVE: CASE EVENT DATE: 201506
